FAERS Safety Report 14822598 (Version 3)
Quarter: 2019Q3

REPORT INFORMATION
  Report Type: Report from Study
  Country: TW (occurrence: TW)
  Receive Date: 20180427
  Receipt Date: 20190807
  Transmission Date: 20191004
  Serious: Yes (Other)
  Sender: FDA-Public Use
  Company Number: PHHY2018TW074522

PATIENT
  Age: 91 Year
  Sex: Female

DRUGS (143)
  1. TASIGNA [Suspect]
     Active Substance: NILOTINIB
     Indication: CHRONIC MYELOID LEUKAEMIA
     Dosage: 600 OT, UNK
     Route: 048
     Dates: start: 20160302, end: 20160308
  2. TASIGNA [Suspect]
     Active Substance: NILOTINIB
     Dosage: 450 OT, UNK
     Route: 048
     Dates: start: 20160502, end: 20160628
  3. ISOSORBIDE DINITRATE. [Concomitant]
     Active Substance: ISOSORBIDE DINITRATE
     Indication: MYOCARDIAL ISCHAEMIA
     Dosage: 10 MG, }3 MONTHS BEFORE VISIT 1
     Route: 048
  4. ISOSORBIDE DINITRATE. [Concomitant]
     Active Substance: ISOSORBIDE DINITRATE
     Dosage: 20 MG, UNK
     Route: 048
     Dates: start: 20171109, end: 20171212
  5. VALSARTAN. [Concomitant]
     Active Substance: VALSARTAN
     Dosage: 160 MG (}3 MONTHS BEFORE VISIT 1), UNK
     Route: 048
     Dates: end: 20160406
  6. AMLODIPINE BESYLATE. [Concomitant]
     Active Substance: AMLODIPINE BESYLATE
     Dosage: 5 MG, UNK
     Route: 048
     Dates: start: 20170529, end: 20170530
  7. GLUCOSE [Concomitant]
     Active Substance: DEXTROSE
     Dosage: 40 ML, (50%)
     Route: 042
     Dates: start: 20171111, end: 20171111
  8. IOHEXOL [Concomitant]
     Active Substance: IOHEXOL
     Indication: COMPUTERISED TOMOGRAM
     Dosage: 252 MG, UNK
     Route: 042
     Dates: start: 20171016, end: 20171016
  9. ISOPHANE HUMAN INSULIN [Concomitant]
     Active Substance: INSULIN HUMAN
     Dosage: 4 U, UNK
     Route: 058
     Dates: start: 20171031, end: 20171031
  10. ISOPHANE HUMAN INSULIN [Concomitant]
     Active Substance: INSULIN HUMAN
     Dosage: 100 IU, UNK
     Route: 058
     Dates: end: 20171031
  11. NICARDIPINE [Concomitant]
     Active Substance: NICARDIPINE
     Dosage: 1 MG, (10 MG/1 ML/AMP)
     Route: 042
     Dates: start: 20171015, end: 20171015
  12. INSULIN [Concomitant]
     Active Substance: INSULIN NOS
     Dosage: 5 U, UNK
     Route: 058
     Dates: start: 20171025, end: 20171025
  13. INSULIN [Concomitant]
     Active Substance: INSULIN NOS
     Dosage: 10 U, UNK
     Route: 042
     Dates: start: 20171106, end: 20171106
  14. TRICHLORMETHIAZIDE [Concomitant]
     Active Substance: TRICHLORMETHIAZIDE
     Indication: HYPERTENSION
     Dosage: 2 MG, UNK
     Route: 048
     Dates: start: 20171012, end: 20171012
  15. MOSAPRIDE [Concomitant]
     Active Substance: MOSAPRIDE
     Dosage: 5 MG, UNK
     Route: 048
     Dates: start: 20160323, end: 20160324
  16. PREDNISOLONE. [Concomitant]
     Active Substance: PREDNISOLONE
     Indication: BRONCHITIS
     Dosage: 5 MG, UNK
     Route: 048
     Dates: start: 20160323, end: 20160325
  17. TASIGNA [Suspect]
     Active Substance: NILOTINIB
     Dosage: 300 OT, UNK
     Route: 048
     Dates: start: 20160309, end: 20160321
  18. PROPRANOLOL [Concomitant]
     Active Substance: PROPRANOLOL HYDROCHLORIDE
     Indication: ARRHYTHMIA
     Dosage: 5 MG, }3 MONTHS BEFORE VISIT 1
     Route: 048
     Dates: end: 20160404
  19. BISACODYL. [Concomitant]
     Active Substance: BISACODYL
     Dosage: 20 UNK, UNK
     Route: 054
     Dates: start: 20171112, end: 20171112
  20. COMBIVENT [Concomitant]
     Active Substance: ALBUTEROL SULFATE\IPRATROPIUM BROMIDE
     Indication: COUGH
     Dosage: 2.5 ML, UNK
     Route: 055
     Dates: start: 20171012, end: 20171016
  21. DILTIAZEM. [Concomitant]
     Active Substance: DILTIAZEM
     Dosage: 30 MG, UNK
     Route: 048
     Dates: start: 20171023, end: 20171023
  22. FUROSEMIDE. [Concomitant]
     Active Substance: FUROSEMIDE
     Dosage: 20 UNK, UNK
     Route: 042
     Dates: start: 20160404, end: 20160409
  23. FUROSEMIDE. [Concomitant]
     Active Substance: FUROSEMIDE
     Dosage: 20 UNK, UNK
     Route: 042
     Dates: start: 20160325, end: 20160325
  24. FUROSEMIDE. [Concomitant]
     Active Substance: FUROSEMIDE
     Dosage: 20 MG/ 2 ML/ AMP
     Route: 042
     Dates: start: 20160412, end: 20160412
  25. GLUCOSE [Concomitant]
     Active Substance: DEXTROSE
     Indication: TYPE 2 DIABETES MELLITUS
     Dosage: 40 ML, (50% 20 ML/AMP)
     Route: 042
     Dates: start: 20171016
  26. INSULIN DETEMIR [Concomitant]
     Active Substance: INSULIN DETEMIR
     Dosage: 5 U, UNK
     Route: 058
     Dates: start: 20171019
  27. MAGNESIUM OXIDE. [Concomitant]
     Active Substance: MAGNESIUM OXIDE
     Indication: PROPHYLAXIS
     Dosage: 250 MG, UNK
     Route: 048
     Dates: start: 20171012, end: 20171016
  28. INSULIN [Concomitant]
     Active Substance: INSULIN NOS
     Dosage: 19 U, UNK
     Route: 042
     Dates: start: 20171016, end: 20171016
  29. INSULIN [Concomitant]
     Active Substance: INSULIN NOS
     Dosage: 8 U, UNK
     Route: 058
     Dates: start: 20171025, end: 20171026
  30. INSULIN [Concomitant]
     Active Substance: INSULIN NOS
     Dosage: 4 U, UNK
     Route: 058
     Dates: start: 20171111, end: 20171120
  31. SODIUM CHLORIDE. [Concomitant]
     Active Substance: SODIUM CHLORIDE
     Dosage: 500 ML, UNK
     Route: 042
     Dates: start: 20171123, end: 20171125
  32. TRICHLORMETHIAZIDE [Concomitant]
     Active Substance: TRICHLORMETHIAZIDE
     Dosage: 2 MG, UNK
     Route: 048
     Dates: start: 20170531, end: 20171017
  33. CELECOXIB. [Concomitant]
     Active Substance: CELECOXIB
     Indication: BACK PAIN
     Dosage: 200 MG, UNK
     Route: 048
     Dates: start: 20160309, end: 20160310
  34. LABETALOL [Concomitant]
     Active Substance: LABETALOL\LABETALOL HYDROCHLORIDE
     Indication: HYPERTENSION
     Dosage: 25 MG/ 5 ML/ AMP
     Route: 042
     Dates: start: 20170529, end: 20170530
  35. SPIRONOLACTONE. [Concomitant]
     Active Substance: SPIRONOLACTONE
     Dosage: 25 MG, UNK
     Route: 048
     Dates: start: 20160418, end: 20160629
  36. ULTRACET [Concomitant]
     Active Substance: ACETAMINOPHEN\TRAMADOL HYDROCHLORIDE
     Indication: BACK PAIN
     Dosage: 1 DF (}3 MONTHS BEFORE VISIT 1), UNK
     Route: 048
     Dates: end: 20160310
  37. DOXAZOSIN [Concomitant]
     Active Substance: DOXAZOSIN MESYLATE
     Indication: HYPERTENSION
     Dosage: 4 MG, }3 MONTHS BEFORE VISIT 1
     Route: 048
     Dates: end: 20160407
  38. AMLODIPINE BESYLATE. [Concomitant]
     Active Substance: AMLODIPINE BESYLATE
     Dosage: 5 MG, UNK
     Route: 048
     Dates: start: 20171113, end: 20171129
  39. BISACODYL. [Concomitant]
     Active Substance: BISACODYL
     Dosage: 20 MG, UNK
     Route: 054
     Dates: start: 20171126, end: 20171126
  40. DILTIAZEM. [Concomitant]
     Active Substance: DILTIAZEM
     Dosage: 30 UNK, UNK
     Route: 048
     Dates: start: 20160314, end: 20160406
  41. ESTAZOLAM. [Concomitant]
     Active Substance: ESTAZOLAM
     Dosage: 2 MG, UNK
     Route: 048
     Dates: start: 20171030, end: 20171206
  42. ESTAZOLAM. [Concomitant]
     Active Substance: ESTAZOLAM
     Dosage: 2 MG, UNK
     Route: 048
     Dates: start: 20160418, end: 20171206
  43. GLUCOSE [Concomitant]
     Active Substance: DEXTROSE
     Dosage: 40 ML, (50%)
     Route: 042
     Dates: start: 20171210, end: 20171210
  44. INSULIN DETEMIR [Concomitant]
     Active Substance: INSULIN DETEMIR
     Dosage: 10 U, UNK
     Route: 058
     Dates: start: 20171020, end: 20171022
  45. LOSARTAN. [Concomitant]
     Active Substance: LOSARTAN
     Indication: HYPERTENSION
     Dosage: 50 MG, UNK
     Route: 048
     Dates: start: 20171012, end: 20171017
  46. INSULIN [Concomitant]
     Active Substance: INSULIN NOS
     Dosage: 4 U, UNK
     Route: 058
     Dates: start: 20171012, end: 20171012
  47. INSULIN [Concomitant]
     Active Substance: INSULIN NOS
     Dosage: 29 U, UNK
     Route: 058
     Dates: start: 20171021, end: 20171021
  48. INSULIN [Concomitant]
     Active Substance: INSULIN NOS
     Dosage: 8 U, UNK
     Route: 058
     Dates: start: 20171120, end: 20171123
  49. SODIUM CHLORIDE. [Concomitant]
     Active Substance: SODIUM CHLORIDE
     Dosage: 500 ML, UNK
     Route: 042
     Dates: start: 20171210, end: 20171210
  50. DEXTROMETHORPHAN [Concomitant]
     Active Substance: DEXTROMETHORPHAN
     Indication: PROPHYLAXIS
     Dosage: 30 MG, UNK
     Dates: start: 20160323, end: 20160405
  51. DICLOFEN.SO.GI [Concomitant]
     Indication: BACK PAIN
     Dosage: 40 G/ TUBE
     Route: 061
     Dates: start: 20160921, end: 20170912
  52. TASIGNA [Suspect]
     Active Substance: NILOTINIB
     Dosage: 600 OT, UNK
     Route: 048
     Dates: start: 20160322, end: 20160501
  53. WARFARIN [Concomitant]
     Active Substance: WARFARIN
     Indication: PROPHYLAXIS
     Dosage: 2.5 MG, }3 MONTHS BEFORE VISIT 1
     Route: 048
     Dates: end: 20171017
  54. AMLODIPINE BESYLATE. [Concomitant]
     Active Substance: AMLODIPINE BESYLATE
     Indication: HYPERTENSION
     Dosage: 5 MG, UNK
     Route: 048
     Dates: start: 20171015, end: 20171015
  55. BISACODYL. [Concomitant]
     Active Substance: BISACODYL
     Dosage: 20 MG, UNK
     Route: 054
     Dates: start: 20171028, end: 20171028
  56. BISACODYL. [Concomitant]
     Active Substance: BISACODYL
     Dosage: 20 MG, UNK
     Route: 054
     Dates: start: 20171209, end: 20171209
  57. EXFORGE HCT [Concomitant]
     Active Substance: AMLODIPINE BESYLATE\HYDROCHLOROTHIAZIDE\VALSARTAN
     Dosage: 12.5 MG, UNK
     Route: 048
     Dates: start: 20171209, end: 20171209
  58. GLUCOSE [Concomitant]
     Active Substance: DEXTROSE
     Dosage: 500 ML, (5%)
     Route: 042
     Dates: start: 20171018, end: 20171019
  59. LOSARTAN. [Concomitant]
     Active Substance: LOSARTAN
     Dosage: 50 MG, UNK
     Route: 048
     Dates: start: 20160921, end: 20171017
  60. INSULIN [Concomitant]
     Active Substance: INSULIN NOS
     Dosage: 17 U, UNK
     Route: 058
     Dates: start: 20171022, end: 20171022
  61. INSULIN [Concomitant]
     Active Substance: INSULIN NOS
     Dosage: 3 U, UNK
     Route: 058
     Dates: start: 20171023, end: 20171023
  62. INSULIN [Concomitant]
     Active Substance: INSULIN NOS
     Dosage: 8 U, UNK
     Route: 058
     Dates: start: 20171024, end: 20171024
  63. INSULIN [Concomitant]
     Active Substance: INSULIN NOS
     Dosage: 10 U, UNK
     Route: 058
     Dates: start: 20171124, end: 20171124
  64. SENNOSIDE [Concomitant]
     Active Substance: SENNOSIDES
     Dosage: 40 MG, UNK
     Route: 048
     Dates: start: 20171021, end: 20171211
  65. SODIUM CHLORIDE. [Concomitant]
     Active Substance: SODIUM CHLORIDE
     Dosage: 500 ML, UNK
     Route: 042
     Dates: start: 20171127, end: 20171129
  66. BENZONATATE. [Concomitant]
     Active Substance: BENZONATATE
     Indication: COUGH
     Dosage: 100 MG, UNK
     Route: 048
     Dates: start: 20160308, end: 20160325
  67. TASIGNA [Suspect]
     Active Substance: NILOTINIB
     Dosage: 600 OT, UNK
     Route: 048
     Dates: start: 20160629, end: 20171211
  68. ISOSORBIDE DINITRATE. [Concomitant]
     Active Substance: ISOSORBIDE DINITRATE
     Dosage: 5 MG, UNK
     Route: 048
     Dates: start: 20160418, end: 20171012
  69. VALSARTAN. [Concomitant]
     Active Substance: VALSARTAN
     Dosage: 160 MG, UNK
     Route: 048
     Dates: start: 20160329, end: 20160405
  70. VALSARTAN. [Concomitant]
     Active Substance: VALSARTAN
     Dosage: 80 MG, UNK
     Route: 048
     Dates: start: 20160406, end: 20160407
  71. CAPTOPRIL. [Concomitant]
     Active Substance: CAPTOPRIL
     Indication: ARRHYTHMIA
     Dosage: 25 MG, UNK
     Route: 048
     Dates: start: 20171017, end: 20171017
  72. CAPTOPRIL. [Concomitant]
     Active Substance: CAPTOPRIL
     Dosage: 25 MG, UNK
     Route: 048
     Dates: start: 20171111, end: 20171113
  73. CAPTOPRIL. [Concomitant]
     Active Substance: CAPTOPRIL
     Dosage: 12.5 MG, UNK
     Route: 048
     Dates: start: 20171113, end: 20171203
  74. COMBIVENT [Concomitant]
     Active Substance: ALBUTEROL SULFATE\IPRATROPIUM BROMIDE
     Indication: PRODUCTIVE COUGH
  75. DILTIAZEM. [Concomitant]
     Active Substance: DILTIAZEM
     Indication: HYPERTENSION
     Dosage: 30 MG, UNK
     Route: 048
     Dates: start: 20171012, end: 20171012
  76. GLUCOSE [Concomitant]
     Active Substance: DEXTROSE
     Dosage: 1500 ML, (5%)
     Route: 042
     Dates: start: 20171016, end: 20171018
  77. GLUCOSE [Concomitant]
     Active Substance: DEXTROSE
     Dosage: 40 ML, (50%)
     Route: 042
     Dates: start: 20171122, end: 20171122
  78. HEPARIN [Concomitant]
     Active Substance: HEPARIN SODIUM
     Indication: PROPHYLAXIS
     Dosage: 5 ML, UNK
     Route: 042
     Dates: start: 20171020, end: 20171020
  79. INSULIN DETEMIR [Concomitant]
     Active Substance: INSULIN DETEMIR
     Dosage: 14 U, UNK
     Route: 058
     Dates: start: 20171022, end: 20171025
  80. ISOPHANE HUMAN INSULIN [Concomitant]
     Active Substance: INSULIN HUMAN
     Dosage: 12 U, UNK
     Route: 058
     Dates: start: 20171026, end: 20171031
  81. ISOSORBIDE-5-MONONITRATE [Concomitant]
     Active Substance: ISOSORBIDE MONONITRATE
     Indication: ARRHYTHMIA
     Dosage: 20 MG, UNK
     Route: 048
     Dates: start: 20171109, end: 20171205
  82. METFORMIN [Concomitant]
     Active Substance: METFORMIN HYDROCHLORIDE
     Indication: TYPE 2 DIABETES MELLITUS
     Dosage: 500 MG, UNK
     Route: 048
     Dates: start: 20171130, end: 20171211
  83. NICARDIPINE [Concomitant]
     Active Substance: NICARDIPINE
     Dosage: 10 MG, UNK
     Route: 042
     Dates: start: 20171012, end: 20171013
  84. INSULIN [Concomitant]
     Active Substance: INSULIN NOS
     Dosage: 12 U, UNK
     Route: 058
     Dates: start: 20171026, end: 20171031
  85. INSULIN [Concomitant]
     Active Substance: INSULIN NOS
     Dosage: 4 U, UNK
     Route: 058
     Dates: start: 20171031, end: 20171105
  86. INSULIN [Concomitant]
     Active Substance: INSULIN NOS
     Dosage: 8 U, UNK
     Route: 058
     Dates: start: 20171211, end: 20171211
  87. REPAGLINIDE. [Concomitant]
     Active Substance: REPAGLINIDE
     Indication: TYPE 2 DIABETES MELLITUS
     Dosage: 0.5 MG, UNK
     Route: 048
     Dates: start: 20171201, end: 20171211
  88. TRAZODONE [Concomitant]
     Active Substance: TRAZODONE HYDROCHLORIDE
     Indication: INSOMNIA
     Dosage: 50 MG, UNK
     Route: 048
     Dates: start: 20171114, end: 20171211
  89. AUGMENTIN [Concomitant]
     Active Substance: AMOXICILLIN\CLAVULANATE POTASSIUM
     Indication: PRODUCTIVE COUGH
  90. ALPRAZOLAMS [Concomitant]
     Indication: INSOMNIA
     Dosage: .25 MG, UNK
     Route: 048
     Dates: start: 20160303, end: 20171017
  91. ALPRAZOLAMS [Concomitant]
     Dosage: .25 MG, UNK
     Route: 048
     Dates: start: 20160323, end: 20160329
  92. ISOSORBIDE DINITRATE. [Concomitant]
     Active Substance: ISOSORBIDE DINITRATE
     Dosage: 5 MG, UNK
     Route: 048
     Dates: start: 20171012, end: 20171012
  93. VALSARTAN. [Concomitant]
     Active Substance: VALSARTAN
     Dosage: 80 MG, UNK
     Route: 048
     Dates: start: 20171129, end: 20171129
  94. BISACODYL. [Concomitant]
     Active Substance: BISACODYL
     Dosage: 20 MG, UNK
     Route: 054
     Dates: start: 20171209, end: 20171209
  95. CAPTOPRIL. [Concomitant]
     Active Substance: CAPTOPRIL
     Dosage: 25 MG, UNK
     Route: 048
     Dates: start: 20171028, end: 20171028
  96. EXFORGE HCT [Concomitant]
     Active Substance: AMLODIPINE BESYLATE\HYDROCHLOROTHIAZIDE\VALSARTAN
     Indication: HYPERTENSION
     Dosage: 12.5 MG, UNK
     Route: 048
     Dates: start: 20171017, end: 20171018
  97. EXFORGE [Concomitant]
     Active Substance: AMLODIPINE BESYLATE\VALSARTAN
     Indication: HYPERTENSION
     Dosage: 1 DF, UNK
     Route: 048
     Dates: start: 20171129, end: 20171211
  98. FUROSEMIDE. [Concomitant]
     Active Substance: FUROSEMIDE
     Indication: HYPERTENSION
     Dosage: 20 MG, UNK
     Route: 042
     Dates: start: 20171015, end: 20171015
  99. FUROSEMIDE. [Concomitant]
     Active Substance: FUROSEMIDE
     Dosage: 20 MG, UNK
     Route: 042
     Dates: start: 20171108, end: 20171113
  100. FUROSEMIDE. [Concomitant]
     Active Substance: FUROSEMIDE
     Dosage: 20 MG, UNK
     Route: 042
     Dates: start: 20171117, end: 20171123
  101. GLUCOSE [Concomitant]
     Active Substance: DEXTROSE
     Dosage: 40 ML, (50%)
     Route: 042
     Dates: start: 20171106, end: 20171106
  102. INSULIN [Concomitant]
     Active Substance: INSULIN NOS
     Indication: TYPE 2 DIABETES MELLITUS
     Dosage: 7 U, UNK
     Route: 042
     Dates: start: 20171011, end: 20171012
  103. INSULIN [Concomitant]
     Active Substance: INSULIN NOS
     Dosage: 6 U, UNK
     Route: 058
     Dates: start: 20171014, end: 20171014
  104. SENNOSIDE [Concomitant]
     Active Substance: SENNOSIDES
     Dosage: 40 MG, UNK
     Route: 048
     Dates: start: 20171014, end: 20171014
  105. SODIUM CHLORIDE. [Concomitant]
     Active Substance: SODIUM CHLORIDE
     Dosage: 500 ML, UNK
     Route: 042
     Dates: start: 20171016, end: 20171117
  106. HYDROCORTISONE. [Concomitant]
     Active Substance: HYDROCORTISONE
     Indication: BRONCHITIS
     Dosage: UNK
     Route: 042
     Dates: start: 20160325, end: 20160329
  107. LORAZEPAM. [Concomitant]
     Active Substance: LORAZEPAM
     Indication: INSOMNIA
     Dosage: .5 MG, UNK
     Route: 048
     Dates: start: 20160325, end: 20160405
  108. SPIRONOLACTONE. [Concomitant]
     Active Substance: SPIRONOLACTONE
     Indication: HYPERTENSION
     Dosage: 25 MG, UNK
     Route: 048
     Dates: start: 20160412, end: 20160414
  109. SPIRONOLACTONE. [Concomitant]
     Active Substance: SPIRONOLACTONE
     Dosage: 50 MG, UNK
     Route: 048
     Dates: start: 20160407, end: 20160409
  110. BISACODYL. [Concomitant]
     Active Substance: BISACODYL
     Dosage: 20 MG, UNK
     Route: 054
     Dates: start: 20171130, end: 20171130
  111. BISACODYL. [Concomitant]
     Active Substance: BISACODYL
     Dosage: 20 MG, UNK
     Route: 054
     Dates: start: 20171204, end: 20171204
  112. FUROSEMIDE. [Concomitant]
     Active Substance: FUROSEMIDE
     Dosage: 20 MG/ 2 ML/ AMP
     Route: 042
     Dates: start: 20170528, end: 20170529
  113. INSULIN DETEMIR [Concomitant]
     Active Substance: INSULIN DETEMIR
     Indication: TYPE 2 DIABETES MELLITUS
     Dosage: 4 U, UNK
     Route: 058
     Dates: start: 20171019
  114. ISOSORBIDE-5-MONONITRATE [Concomitant]
     Active Substance: ISOSORBIDE MONONITRATE
     Dosage: 20 MG, UNK
     Route: 048
     Dates: start: 20171205, end: 20171211
  115. LIDOCAINE. [Concomitant]
     Active Substance: LIDOCAINE
     Indication: PROPHYLAXIS
     Dosage: 20 ML, UNK
     Route: 065
     Dates: start: 20171020, end: 20171020
  116. NICORANDIL [Concomitant]
     Active Substance: NICORANDIL
     Indication: HYPERTENSION
     Dosage: 5 MG, UNK
     Route: 048
     Dates: start: 20171018, end: 20171211
  117. INSULIN [Concomitant]
     Active Substance: INSULIN NOS
     Dosage: 18 U, UNK
     Route: 058
     Dates: start: 20171013, end: 20171013
  118. INSULIN [Concomitant]
     Active Substance: INSULIN NOS
     Dosage: 5 U, UNK
     Route: 042
     Dates: start: 20171016, end: 20171019
  119. SODIUM CHLORIDE. [Concomitant]
     Active Substance: SODIUM CHLORIDE
     Indication: PRODUCT USED FOR UNKNOWN INDICATION
     Dosage: 250 ML, UNK
     Route: 042
     Dates: start: 20171016, end: 20171016
  120. BENZONATATE. [Concomitant]
     Active Substance: BENZONATATE
     Indication: PRODUCTIVE COUGH
     Dosage: 100 MG, UNK
     Route: 048
     Dates: start: 20160326, end: 20160326
  121. MOSAPRIDE [Concomitant]
     Active Substance: MOSAPRIDE
     Indication: PROPHYLAXIS
     Dosage: 5 MG, UNK
     Route: 048
     Dates: start: 20160316, end: 20160318
  122. ISOSORBIDE DINITRATE. [Concomitant]
     Active Substance: ISOSORBIDE DINITRATE
     Dosage: 10 MG, }3 MONTHS BEFORE VISIT 1
     Route: 048
     Dates: end: 20160405
  123. LACIDIPINE [Concomitant]
     Active Substance: LACIDIPINE
     Indication: HYPERTENSION
     Dosage: 4 MG, }3 MONTHS BEFORE VISIT 1
     Route: 048
     Dates: end: 20160407
  124. VALSARTAN. [Concomitant]
     Active Substance: VALSARTAN
     Indication: HYPERTENSION
     Dosage: 160 MG, }3 MONTHS BEFORE VISIT 1
     Route: 048
  125. BISACODYL. [Concomitant]
     Active Substance: BISACODYL
     Indication: PROPHYLAXIS
     Dosage: 10 MG, UNK
     Route: 054
     Dates: start: 20171019, end: 20171019
  126. BISACODYL. [Concomitant]
     Active Substance: BISACODYL
     Dosage: 20 MG, UNK
     Route: 054
     Dates: start: 20171106, end: 20171106
  127. BISACODYL. [Concomitant]
     Active Substance: BISACODYL
     Dosage: 20 MG, UNK
     Route: 054
     Dates: start: 20171116, end: 20171116
  128. CAPTOPRIL. [Concomitant]
     Active Substance: CAPTOPRIL
     Dosage: 25 MG, UNK
     Route: 048
     Dates: start: 20171106, end: 20171106
  129. CAPTOPRIL. [Concomitant]
     Active Substance: CAPTOPRIL
     Dosage: 25 MG, UNK
     Route: 048
     Dates: start: 20171203, end: 20171211
  130. ESTAZOLAM. [Concomitant]
     Active Substance: ESTAZOLAM
     Indication: INSOMNIA
     Dosage: 2 MG, UNK
     Route: 048
     Dates: start: 20171012, end: 20171018
  131. ISOPHANE HUMAN INSULIN [Concomitant]
     Active Substance: INSULIN HUMAN
     Indication: TYPE 2 DIABETES MELLITUS
     Dosage: 8 U, UNK
     Route: 058
     Dates: start: 20171025, end: 20171026
  132. NICARDIPINE [Concomitant]
     Active Substance: NICARDIPINE
     Indication: HYPERTENSION
     Dosage: 0.1 MG, (10 MG/10 ML/AMP))
     Route: 042
     Dates: start: 20171012
  133. INSULIN [Concomitant]
     Active Substance: INSULIN NOS
     Dosage: 3 U, UNK
     Route: 058
     Dates: start: 20171014, end: 20171016
  134. INSULIN [Concomitant]
     Active Substance: INSULIN NOS
     Dosage: 10 U, UNK
     Route: 058
     Dates: start: 20171020, end: 20171020
  135. INSULIN [Concomitant]
     Active Substance: INSULIN NOS
     Dosage: 10 U, UNK
     Route: 042
     Dates: start: 20171210, end: 20171210
  136. SENNOSIDE [Concomitant]
     Active Substance: SENNOSIDES
     Indication: PROPHYLAXIS
     Dosage: 40 MG, UNK
     Route: 048
     Dates: start: 20171012, end: 20171012
  137. SENNOSIDE [Concomitant]
     Active Substance: SENNOSIDES
     Dosage: 40 MG, UNK
     Route: 048
     Dates: start: 20160418, end: 20171211
  138. TRIAMCINOLONE [Concomitant]
     Active Substance: TRIAMCINOLONE
     Indication: PROPHYLAXIS
     Dosage: 6 G, UNK
     Route: 065
     Dates: start: 20171031, end: 20171031
  139. AUGMENTIN [Concomitant]
     Active Substance: AMOXICILLIN\CLAVULANATE POTASSIUM
     Indication: COUGH
     Dosage: 1 G, UNK
     Route: 048
     Dates: start: 20160308, end: 20160323
  140. ALPRAZOLAMS [Concomitant]
     Dosage: .5 MG, UNK
     Route: 048
     Dates: start: 20170721, end: 20171116
  141. ETORICOXIB. [Concomitant]
     Active Substance: ETORICOXIB
     Indication: BACK PAIN
     Dosage: 60 MG, UNK
     Route: 048
     Dates: start: 20160310, end: 20160407
  142. NYSTATIN. [Concomitant]
     Active Substance: NYSTATIN
     Indication: PROPHYLAXIS
     Dosage: 500000 UNK, UNK
     Route: 049
     Dates: start: 20160329, end: 20160407
  143. SPIRONOLACTONE. [Concomitant]
     Active Substance: SPIRONOLACTONE
     Dosage: 25 MG, UNK
     Route: 048
     Dates: start: 20160329, end: 20160329

REACTIONS (1)
  - Bipolar I disorder [Not Recovered/Not Resolved]

NARRATIVE: CASE EVENT DATE: 20171017
